FAERS Safety Report 7807823-7 (Version None)
Quarter: 2011Q4

REPORT INFORMATION
  Report Type: 
  Country: None (occurrence: None)
  Receive Date: 20111011
  Receipt Date: 20110927
  Transmission Date: 20120403
  Serious: Yes (Hospitalization)
  Sender: FDA-Public Use
  Company Number: FR-SANOFI-AVENTIS-2011SA063083

PATIENT
  Age: 64 Year
  Sex: Male

DRUGS (11)
  1. TRAMADOL HCL [Suspect]
     Route: 048
     Dates: end: 20110609
  2. PERINDOPRIL ERBUMINE [Concomitant]
     Route: 048
  3. MOXIFLOXACIN [Suspect]
     Route: 048
     Dates: start: 20110606, end: 20110616
  4. ISONIAZID [Concomitant]
     Indication: PULMONARY TUBERCULOSIS
     Route: 048
     Dates: start: 20110606, end: 20110616
  5. EFFEXOR [Concomitant]
     Indication: DEPRESSION
     Route: 048
  6. RIFAMPICIN [Concomitant]
     Indication: PULMONARY TUBERCULOSIS
     Route: 065
  7. TRAMADOL HCL [Concomitant]
     Route: 065
  8. BISOPROLOL FUMARATE [Concomitant]
     Route: 048
  9. ZOLPIDEM [Suspect]
     Route: 048
     Dates: end: 20110609
  10. PYRAZINAMIDE [Concomitant]
     Indication: PULMONARY TUBERCULOSIS
     Route: 048
     Dates: start: 20110606, end: 20110616
  11. MYAMBUTOL [Concomitant]
     Indication: PULMONARY TUBERCULOSIS
     Route: 065

REACTIONS (1)
  - HEPATOCELLULAR INJURY [None]
